FAERS Safety Report 23194050 (Version 1)
Quarter: 2023Q4

REPORT INFORMATION
  Report Type: Spontaneous
  Country: MY (occurrence: None)
  Receive Date: 20231117
  Receipt Date: 20231117
  Transmission Date: 20240109
  Serious: Yes (Hospitalization, Other)
  Sender: FDA-Public Use
  Company Number: MY-Unichem Pharmaceuticals (USA) Inc-UCM202311-001410

PATIENT
  Age: 82 Year
  Sex: Female

DRUGS (2)
  1. METFORMIN HYDROCHLORIDE [Suspect]
     Active Substance: METFORMIN HYDROCHLORIDE
     Indication: Type 2 diabetes mellitus
  2. GLICLAZIDE [Concomitant]
     Active Substance: GLICLAZIDE
     Indication: Type 2 diabetes mellitus

REACTIONS (8)
  - Septic shock [Recovered/Resolved]
  - Shock [Recovered/Resolved]
  - Lactic acidosis [Recovered/Resolved]
  - Gastroenteritis [Recovered/Resolved]
  - Acute hepatic failure [Recovered/Resolved]
  - Hypertransaminasaemia [Recovered/Resolved]
  - Renal impairment [Recovered/Resolved]
  - Metabolic acidosis [Recovered/Resolved]
